FAERS Safety Report 24953806 (Version 1)
Quarter: 2025Q1

REPORT INFORMATION
  Report Type: Spontaneous
  Country: DE (occurrence: DE)
  Receive Date: 20250211
  Receipt Date: 20250211
  Transmission Date: 20250408
  Serious: Yes (Hospitalization, Other)
  Sender: DR REDDYS
  Company Number: None

PATIENT
  Sex: Female
  Weight: 3.604 kg

DRUGS (12)
  1. FLUOXETINE HYDROCHLORIDE [Suspect]
     Active Substance: FLUOXETINE HYDROCHLORIDE
     Indication: Depression
     Dosage: FOR 3 YEARS, PRECONCEPTIONALLY 40 MG/D, AFTER POSITIVE PREGNANCY TEST REDUCTION TO 30 MG/D, FURTHER
     Route: 064
     Dates: start: 202305, end: 202402
  2. FLUOXETINE HYDROCHLORIDE [Suspect]
     Active Substance: FLUOXETINE HYDROCHLORIDE
     Indication: Obsessive thoughts
  3. DIETARY SUPPLEMENT\HERBALS [Concomitant]
     Active Substance: DIETARY SUPPLEMENT\HERBALS
     Indication: COVID-19
     Route: 064
     Dates: start: 202401, end: 202401
  4. EMSERPASTILLE [Concomitant]
     Indication: COVID-19
     Route: 064
     Dates: start: 202401, end: 202401
  5. FRAGMIN [Concomitant]
     Active Substance: DALTEPARIN SODIUM
     Indication: Assisted fertilisation
     Route: 064
     Dates: start: 202305, end: 202308
  6. FRAGMIN [Concomitant]
     Active Substance: DALTEPARIN SODIUM
     Route: 064
     Dates: start: 202311, end: 202402
  7. OCTENIDINE\PHENOXYETHANOL [Concomitant]
     Active Substance: OCTENIDINE\PHENOXYETHANOL
     Indication: Nail bed inflammation
     Route: 064
     Dates: start: 202307, end: 202312
  8. ISLA MOOS [Concomitant]
     Indication: COVID-19
     Route: 064
     Dates: start: 202401, end: 202401
  9. GRIPPEIMPFSTOFF [Concomitant]
     Active Substance: INFLUENZA VIRUS VACCINE
     Indication: Immunisation
     Route: 064
  10. MEERWASSERNASENSPRAY [Concomitant]
     Indication: COVID-19
     Route: 064
     Dates: start: 202401, end: 202401
  11. PERTUSSIS VACCINE [Concomitant]
     Active Substance: PERTUSSIS VACCINE
     Indication: Immunisation
     Route: 064
     Dates: start: 202312, end: 202312
  12. ACETAMINOPHEN [Concomitant]
     Active Substance: ACETAMINOPHEN
     Indication: COVID-19
     Route: 064
     Dates: start: 202401, end: 202401

REACTIONS (4)
  - Brief resolved unexplained event [Recovered/Resolved]
  - Sleep apnoea syndrome [Unknown]
  - Neonatal hypoxia [Unknown]
  - Foetal exposure during pregnancy [Unknown]

NARRATIVE: CASE EVENT DATE: 20240201
